FAERS Safety Report 10467024 (Version 2)
Quarter: 2015Q2

REPORT INFORMATION
  Report Type: Report from Study
  Country: TR (occurrence: TR)
  Receive Date: 20140922
  Receipt Date: 20150520
  Transmission Date: 20150821
  Serious: Yes (Hospitalization, Other)
  Sender: FDA-Public Use
  Company Number: TR-NOVOPROD-422559

PATIENT
  Sex: Female
  Weight: 2.3 kg

DRUGS (5)
  1. NOVORAPID [Suspect]
     Active Substance: INSULIN ASPART
     Indication: GESTATIONAL DIABETES
     Dosage: 24 U, QD
     Route: 064
     Dates: start: 20140428, end: 20140722
  2. INSULATARD NPH HUMAN [Suspect]
     Active Substance: INSULIN HUMAN
     Indication: GESTATIONAL DIABETES
     Dosage: 6 U, QD
     Route: 064
     Dates: start: 20140428, end: 20140722
  3. MALTOFER                           /00023548/ [Concomitant]
     Indication: MINERAL SUPPLEMENTATION
     Dosage: 1X1
     Route: 064
     Dates: start: 201403, end: 20140722
  4. ASPIRIN. [Concomitant]
     Active Substance: ASPIRIN
     Dosage: 1X1
     Route: 064
     Dates: start: 201402, end: 20140722
  5. OSTEOCARE [Concomitant]
     Active Substance: CALCIUM\CHOLECALCIFEROL\MAGNESIUM\ZINC
     Indication: MINERAL SUPPLEMENTATION
     Dosage: 1X2
     Route: 064
     Dates: start: 201402, end: 20140722

REACTIONS (4)
  - Jaundice neonatal [Recovered/Resolved]
  - Premature baby [Unknown]
  - Neonatal respiratory distress syndrome [Recovered/Resolved]
  - Foetal exposure during pregnancy [Recovered/Resolved]

NARRATIVE: CASE EVENT DATE: 20140428
